FAERS Safety Report 6160026-7 (Version None)
Quarter: 2009Q2

REPORT INFORMATION
  Report Type: 
  Country: None (occurrence: None)
  Receive Date: 20090420
  Receipt Date: 20090408
  Transmission Date: 20091009
  Serious: Yes (Other)
  Sender: FDA-Public Use
  Company Number: CA-BAYER-200917953NA

PATIENT
  Age: 81 Year
  Sex: Female
  Weight: 166 kg

DRUGS (10)
  1. GLUCOBAY [Suspect]
     Indication: DRUG USE FOR UNKNOWN INDICATION
     Dosage: TOTAL DAILY DOSE: 150 MG  UNIT DOSE: 50 MG
     Route: 048
  2. APO-ATENOL [Concomitant]
     Route: 048
  3. APO-RAMIPRIL [Concomitant]
     Route: 048
  4. AVANDIA [Concomitant]
     Route: 048
  5. COUMADIN [Concomitant]
     Route: 048
  6. EURO-CAL D [Concomitant]
     Route: 048
  7. EURO-FER [Concomitant]
     Route: 048
  8. GLYBURIDE [Concomitant]
     Route: 048
  9. LIPITOR [Concomitant]
     Route: 048
  10. NITRO-DUR [Concomitant]
     Route: 062

REACTIONS (3)
  - OEDEMA PERIPHERAL [None]
  - PALPITATIONS [None]
  - RESPIRATORY DISTRESS [None]
